FAERS Safety Report 8888796 (Version 1)
Quarter: 2012Q4

REPORT INFORMATION
  Report Type: 
  Country: US (occurrence: US)
  Receive Date: 20121106
  Receipt Date: 20121106
  Transmission Date: 20130627
  Serious: No
  Sender: FDA-Public Use
  Company Number: US-ASTRAZENECA-2012SE81049

PATIENT
  Age: 67 Year
  Sex: Female

DRUGS (1)
  1. SEROQUEL XR [Suspect]
     Dosage: SEROQUEL XR 400 MG IN HALF TO EQUAL SEROQUEL XR 200 MG
     Route: 048

REACTIONS (4)
  - Psychomotor hyperactivity [Unknown]
  - Logorrhoea [Unknown]
  - Drug dispensing error [Unknown]
  - Intentional drug misuse [Unknown]
